FAERS Safety Report 12492892 (Version 1)
Quarter: 2016Q2

REPORT INFORMATION
  Report Type: Spontaneous
  Country: PT (occurrence: PT)
  Receive Date: 20160623
  Receipt Date: 20160623
  Transmission Date: 20160815
  Serious: Yes (Other)
  Sender: FDA-Public Use
  Company Number: PT-TEVA-668811ISR

PATIENT
  Age: 76 Year
  Sex: Male

DRUGS (1)
  1. COTRIMOXAZOLE [Suspect]
     Active Substance: SULFAMETHOXAZOLE\TRIMETHOPRIM
     Indication: PNEUMOCYSTIS JIROVECII INFECTION
     Dosage: 6 DOSAGE FORMS DAILY;
     Route: 048
     Dates: start: 20160523, end: 20160603

REACTIONS (5)
  - Product quality issue [Recovering/Resolving]
  - Hepatocellular injury [Recovering/Resolving]
  - Transaminases increased [Recovering/Resolving]
  - Pancytopenia [Recovering/Resolving]
  - Rash [Recovering/Resolving]

NARRATIVE: CASE EVENT DATE: 20160602
